FAERS Safety Report 8452538-8 (Version None)
Quarter: 2012Q2

REPORT INFORMATION
  Report Type: 
  Country: None (occurrence: None)
  Receive Date: 20120620
  Receipt Date: 20120428
  Transmission Date: 20120825
  Serious: No
  Sender: FDA-Public Use
  Company Number: US-VERTEX PHARMACEUTICALS INC.-AE-2012-005424

PATIENT
  Sex: Male
  Weight: 99.88 kg

DRUGS (5)
  1. OXYCODONE HCL [Concomitant]
     Indication: PAIN
  2. RIBAVIRIN [Concomitant]
     Indication: HEPATITIS C
     Route: 048
     Dates: start: 20120316
  3. INCIVEK [Suspect]
     Indication: HEPATITIS C
     Route: 048
     Dates: start: 20120316
  4. PEGASYS [Concomitant]
     Indication: HEPATITIS C
     Route: 058
     Dates: start: 20120316
  5. CLONEZEPAM [Concomitant]
     Indication: ANXIETY
     Route: 048

REACTIONS (7)
  - HEADACHE [None]
  - CHILLS [None]
  - NAUSEA [None]
  - INFLUENZA LIKE ILLNESS [None]
  - RASH GENERALISED [None]
  - PAIN [None]
  - VISION BLURRED [None]
